FAERS Safety Report 6395695-X (Version None)
Quarter: 2009Q4

REPORT INFORMATION
  Report Type: 
  Country: None (occurrence: None)
  Receive Date: 20091009
  Receipt Date: 20090929
  Transmission Date: 20100525
  Serious: Yes (Hospitalization)
  Sender: FDA-Public Use
  Company Number: PHHY2009MX39491

PATIENT
  Age: 25 Year
  Sex: Female

DRUGS (2)
  1. LAMISIL [Suspect]
     Indication: ONYCHOMYCOSIS
     Dosage: 1 TABLET (250MG) PER DAY
     Route: 048
     Dates: start: 20090601, end: 20090801
  2. LAMISIL [Suspect]
     Dosage: 1 TABLET (250MG) PER DAY
     Route: 048
     Dates: start: 20090921

REACTIONS (1)
  - APPENDICECTOMY [None]
